FAERS Safety Report 25746776 (Version 1)
Quarter: 2025Q3

REPORT INFORMATION
  Report Type: Spontaneous
  Country: US (occurrence: US)
  Receive Date: 20250901
  Receipt Date: 20250901
  Transmission Date: 20251020
  Serious: Yes (Other)
  Sender: ASTELLAS
  Company Number: US-ASTELLAS-2025-AER-047544

PATIENT
  Age: 47 Year
  Sex: Female

DRUGS (1)
  1. REGADENOSON [Suspect]
     Active Substance: REGADENOSON
     Indication: Scan myocardial perfusion
     Route: 065
     Dates: start: 201607

REACTIONS (2)
  - Ventricular tachycardia [Recovered/Resolved]
  - Cardiac sarcoidosis [Recovered/Resolved]

NARRATIVE: CASE EVENT DATE: 20160701
